FAERS Safety Report 17286991 (Version 2)
Quarter: 2020Q1

REPORT INFORMATION
  Report Type: Report from Study
  Country: DE (occurrence: DE)
  Receive Date: 20200120
  Receipt Date: 20200128
  Transmission Date: 20200409
  Serious: Yes (Hospitalization)
  Sender: FDA-Public Use
  Company Number: DE-ROCHE-2521707

PATIENT
  Sex: Female
  Weight: 72 kg

DRUGS (9)
  1. MYDRUM [Concomitant]
     Active Substance: TROPICAMIDE
     Route: 065
     Dates: start: 20191128, end: 20191228
  2. GABAPENTIN. [Concomitant]
     Active Substance: GABAPENTIN
     Route: 048
  3. RITUXIMAB. [Suspect]
     Active Substance: RITUXIMAB
     Indication: CHRONIC LYMPHOCYTIC LEUKAEMIA
     Route: 065
     Dates: start: 20170926, end: 20180213
  4. SIMVABETA [Concomitant]
     Active Substance: SIMVASTATIN
     Route: 048
  5. VENETOCLAX. [Suspect]
     Active Substance: VENETOCLAX
     Indication: CHRONIC LYMPHOCYTIC LEUKAEMIA
     Route: 065
     Dates: start: 20171017, end: 20180827
  6. KOMBOGLYZE [Concomitant]
     Active Substance: METFORMIN HYDROCHLORIDE\SAXAGLIPTIN
     Route: 048
  7. ASS PROTECT [Concomitant]
     Route: 048
  8. FLOXAL [Concomitant]
     Active Substance: OFLOXACIN
     Route: 065
     Dates: start: 20191128, end: 20191228
  9. ESOMEPRAZOLE. [Concomitant]
     Active Substance: ESOMEPRAZOLE MAGNESIUM
     Route: 048

REACTIONS (1)
  - Maculopathy [Not Recovered/Not Resolved]

NARRATIVE: CASE EVENT DATE: 20190617
